FAERS Safety Report 15664317 (Version 1)
Quarter: 2018Q4

REPORT INFORMATION
  Report Type: Other
  Country: GB (occurrence: GB)
  Receive Date: 20181128
  Receipt Date: 20181128
  Transmission Date: 20190205
  Serious: Yes (Other)
  Sender: FDA-Public Use
  Company Number: GB-LUPIN PHARMACEUTICALS INC.-2018-08247

PATIENT
  Age: 29 Year

DRUGS (1)
  1. SERTRALINE [Suspect]
     Active Substance: SERTRALINE HYDROCHLORIDE
     Indication: LETHARGY
     Dosage: UNK
     Route: 048
     Dates: start: 2015, end: 2017

REACTIONS (4)
  - Suicidal ideation [Recovered/Resolved]
  - Paraesthesia [Unknown]
  - Influenza like illness [Unknown]
  - Withdrawal syndrome [Recovered/Resolved]

NARRATIVE: CASE EVENT DATE: 2017
